FAERS Safety Report 7865318-9 (Version None)
Quarter: 2011Q4

REPORT INFORMATION
  Report Type: 
  Country: None (occurrence: None)
  Receive Date: 20111028
  Receipt Date: 20101122
  Transmission Date: 20120403
  Serious: No
  Sender: FDA-Public Use
  Company Number: US-GLAXOSMITHKLINE-A0894525A

PATIENT
  Sex: Male

DRUGS (5)
  1. ADVAIR DISKUS 100/50 [Suspect]
     Indication: CHRONIC OBSTRUCTIVE PULMONARY DISEASE
     Route: 055
  2. COMBIVENT [Concomitant]
  3. CRESTOR [Concomitant]
  4. ADVAIR DISKUS 100/50 [Suspect]
     Dosage: 1PUFF TWICE PER DAY
     Route: 055
     Dates: start: 20100601
  5. HYDROCODONE BITARTRATE [Concomitant]

REACTIONS (4)
  - DRUG INEFFECTIVE [None]
  - RESPIRATORY TRACT IRRITATION [None]
  - DYSPNOEA [None]
  - OVERDOSE [None]
